FAERS Safety Report 5027787-1 (Version None)
Quarter: 2006Q2

REPORT INFORMATION
  Report Type: 
  Country: None (occurrence: None)
  Receive Date: 20060614
  Receipt Date: 20060614
  Transmission Date: 20061013
  Serious: Yes (Other)
  Sender: FDA-Public Use
  Company Number: None

PATIENT
  Age: 59 Year
  Sex: Male
  Weight: 123.3784 kg

DRUGS (1)
  1. ROSIGLITAZONE [Suspect]
     Indication: DYSLIPIDAEMIA
     Dosage: 8MG  PO  QDAY
     Route: 048
     Dates: start: 20051007, end: 20060428

REACTIONS (1)
  - WEIGHT INCREASED [None]
